FAERS Safety Report 17717820 (Version 1)
Quarter: 2020Q2

REPORT INFORMATION
  Report Type: Spontaneous
  Country: US (occurrence: US)
  Receive Date: 20200428
  Receipt Date: 20200428
  Transmission Date: 20200714
  Serious: No
  Sender: FDA-Public Use
  Company Number: US-ASTRAZENECA-2020SE37363

PATIENT
  Age: 23827 Day
  Sex: Female
  Weight: 132.9 kg

DRUGS (10)
  1. DICLOFENAC [Concomitant]
     Active Substance: DICLOFENAC
  2. METFORMIN [Concomitant]
     Active Substance: METFORMIN HYDROCHLORIDE
  3. POTASSIUM [Concomitant]
     Active Substance: POTASSIUM
  4. ROSUVASTATIN CALCIUM. [Suspect]
     Active Substance: ROSUVASTATIN CALCIUM
     Route: 048
  5. BYDUREON BCISE [Suspect]
     Active Substance: EXENATIDE
     Indication: TYPE 2 DIABETES MELLITUS
     Route: 058
     Dates: start: 202003
  6. JARDIANCE [Concomitant]
     Active Substance: EMPAGLIFLOZIN
  7. METOPROLOL SUCCINATE. [Concomitant]
     Active Substance: METOPROLOL SUCCINATE
  8. MULTI VITAMIN [Concomitant]
     Active Substance: VITAMINS
  9. BUMETANIDE. [Concomitant]
     Active Substance: BUMETANIDE
  10. PROBIOTIC [Concomitant]
     Active Substance: PROBIOTICS NOS

REACTIONS (3)
  - Incorrect dose administered by device [Unknown]
  - Type 2 diabetes mellitus [Unknown]
  - Device delivery system issue [Unknown]

NARRATIVE: CASE EVENT DATE: 20200311
